FAERS Safety Report 6541606-3 (Version None)
Quarter: 2010Q1

REPORT INFORMATION
  Report Type: 
  Country: None (occurrence: None)
  Receive Date: 20100119
  Receipt Date: 20100114
  Transmission Date: 20100710
  Serious: Yes (Other)
  Sender: FDA-Public Use
  Company Number: KR-BRISTOL-MYERS SQUIBB COMPANY-14796460

PATIENT
  Age: 68 Year
  Sex: Male

DRUGS (2)
  1. APROVEL [Suspect]
     Indication: HYPERTENSION
     Route: 048
     Dates: start: 20070101
  2. COZAAR [Concomitant]
     Indication: HYPERTENSION
     Dosage: TAB
     Route: 048
     Dates: start: 20070101

REACTIONS (2)
  - RETINAL DISORDER [None]
  - VISION BLURRED [None]
